FAERS Safety Report 23350932 (Version 1)
Quarter: 2023Q4

REPORT INFORMATION
  Report Type: Spontaneous
  Country: US (occurrence: None)
  Receive Date: 20231228
  Receipt Date: 20231228
  Transmission Date: 20240110
  Serious: Yes (Hospitalization)
  Sender: FDA-Public Use
  Company Number: None

PATIENT
  Sex: Male

DRUGS (9)
  1. NEORAL [Suspect]
     Active Substance: CYCLOSPORINE
     Indication: Heart transplant
     Route: 048
     Dates: start: 20171227
  2. CELLCEP SUS [Concomitant]
  3. EPLERENONE TAB 25MG [Concomitant]
  4. LASIX TAB 20MG [Concomitant]
  5. NORVASC TAB 5MG [Concomitant]
  6. PRAVACHOL TAB 10MG [Concomitant]
  7. PREVACID CAP 15MG DR [Concomitant]
  8. REVATIO TAB 20MG [Concomitant]
  9. TEMAZEPAM CAP 15MG [Concomitant]

REACTIONS (2)
  - Vascular catheterisation [None]
  - Therapy interrupted [None]
